FAERS Safety Report 24318715 (Version 2)
Quarter: 2024Q3

REPORT INFORMATION
  Report Type: Spontaneous
  Country: JP (occurrence: JP)
  Receive Date: 20240913
  Receipt Date: 20240930
  Transmission Date: 20241017
  Serious: Yes (Other)
  Sender: MALLINCKRODT
  Company Number: JP-MALLINCKRODT-MNK202405560

PATIENT
  Age: 54 Year
  Sex: Male
  Weight: 120 kg

DRUGS (1)
  1. NITRIC OXIDE [Suspect]
     Active Substance: NITRIC OXIDE
     Indication: Pulmonary hypertension
     Dosage: UNKNOWN
     Route: 055

REACTIONS (2)
  - Pneumonia [Recovering/Resolving]
  - Pulmonary oedema [Recovering/Resolving]
